FAERS Safety Report 11745230 (Version 1)
Quarter: 2015Q4

REPORT INFORMATION
  Report Type: Spontaneous
  Country: GB (occurrence: GB)
  Receive Date: 20151117
  Receipt Date: 20151117
  Transmission Date: 20160304
  Serious: Yes (Disabling)
  Sender: FDA-Public Use
  Company Number: GB-ROCHE-1661661

PATIENT
  Age: 60 Year
  Sex: Female
  Weight: 85.27 kg

DRUGS (9)
  1. RITUXIMAB [Suspect]
     Active Substance: RITUXIMAB
     Indication: RHEUMATOID ARTHRITIS
     Dosage: 2 INTRAVENOUS INFUSIONS ADMINISTERED BY LOCAL HOSPITAL?LAST DOSE ON 19/MAR/2015.
     Route: 042
     Dates: start: 20150305
  2. ECHINACEA EXTRACT [Concomitant]
     Active Substance: ECHINACEA EXTRACT
     Route: 065
  3. PERINDOPRIL TERT-BUTYLAMINE [Concomitant]
     Route: 065
  4. ATORVASTATIN [Concomitant]
     Active Substance: ATORVASTATIN
     Route: 065
  5. OMEGA-3 FISH OIL FAT EMULSION INJECTION [Concomitant]
     Route: 065
  6. FLUOXETINE [Concomitant]
     Active Substance: FLUOXETINE HYDROCHLORIDE
     Route: 065
  7. PARACETAMOL [Concomitant]
     Active Substance: ACETAMINOPHEN
     Route: 065
  8. METFORMIN [Concomitant]
     Active Substance: METFORMIN HYDROCHLORIDE
     Route: 065
  9. ROSE HIPS [Concomitant]
     Route: 065

REACTIONS (4)
  - Colitis ulcerative [Not Recovered/Not Resolved]
  - Abnormal loss of weight [Unknown]
  - Polyp [Not Recovered/Not Resolved]
  - Diarrhoea [Unknown]

NARRATIVE: CASE EVENT DATE: 20150421
